FAERS Safety Report 7073696-6 (Version None)
Quarter: 2010Q4

REPORT INFORMATION
  Report Type: 
  Country: None (occurrence: None)
  Receive Date: 20101029
  Receipt Date: 20100802
  Transmission Date: 20110411
  Serious: No
  Sender: FDA-Public Use
  Company Number: A0873453A

PATIENT
  Age: 76 Year
  Sex: Female

DRUGS (2)
  1. ADVAIR DISKUS 100/50 [Suspect]
     Indication: BRONCHITIS
     Dosage: 1PUFF TWICE PER DAY
     Route: 055
     Dates: start: 20100720, end: 20100729
  2. NO CONCURRENT MEDICATION [Concomitant]

REACTIONS (4)
  - BLOOD PRESSURE INCREASED [None]
  - THROAT IRRITATION [None]
  - TONGUE DISCOLOURATION [None]
  - URTICARIA [None]
